FAERS Safety Report 4554972-5 (Version None)
Quarter: 2004Q4

REPORT INFORMATION
  Report Type: 
  Country: None (occurrence: None)
  Receive Date: 20041222
  Receipt Date: 20041119
  Transmission Date: 20050328
  Serious: Yes (Hospitalization)
  Sender: FDA-Public Use
  Company Number: 208418

PATIENT
  Age: 80 Year
  Sex: Male
  Weight: 76.6 kg

DRUGS (9)
  1. AVASTIN [Suspect]
     Indication: METASTATIC RENAL CELL CARCINOMA
     Dosage: 800 MG Q2W, INTRAVENOUS
     Route: 042
     Dates: start: 20040609, end: 20040802
  2. INTERFERON ALFA-2B (INTERFERON ALFA-2B) [Concomitant]
  3. OXANDRIN [Concomitant]
  4. MEGACE [Concomitant]
  5. MVI (MULTIVITAMINS NOS) [Concomitant]
  6. ASPIRIN [Concomitant]
  7. INDERAL (PROPRANOLOL HYDROCHLORIDE) PWDR + SOLVENT, INFUSION SOLN [Concomitant]
  8. ULTRAM [Concomitant]
  9. PERCOCET [Concomitant]

REACTIONS (1)
  - HAEMOPTYSIS [None]
